FAERS Safety Report 6474189-7 (Version None)
Quarter: 2009Q4

REPORT INFORMATION
  Report Type: 
  Country: None (occurrence: None)
  Receive Date: 20091204
  Receipt Date: 20091123
  Transmission Date: 20100525
  Serious: Yes (Other)
  Sender: FDA-Public Use
  Company Number: US-PFIZER INC-2009220300

PATIENT
  Sex: Male

DRUGS (2)
  1. GEODON [Suspect]
     Dosage: 40 MG, 2X/DAY
     Route: 048
     Dates: start: 20090101
  2. ZYPREXA [Concomitant]
     Dosage: 15 MG, 1X/DAY
     Route: 048

REACTIONS (3)
  - HEPATO-LENTICULAR DEGENERATION [None]
  - TARDIVE DYSKINESIA [None]
  - TORTICOLLIS [None]
